FAERS Safety Report 15402674 (Version 1)
Quarter: 2018Q3

REPORT INFORMATION
  Report Type: Spontaneous
  Country: US (occurrence: US)
  Receive Date: 20180919
  Receipt Date: 20180919
  Transmission Date: 20181010
  Serious: Yes (Death, Hospitalization, Disabling)
  Sender: FDA-Public Use
  Company Number: US-JNJFOC-20180918885

PATIENT
  Age: 57 Year
  Sex: Male

DRUGS (3)
  1. METFORMIN [Suspect]
     Active Substance: METFORMIN HYDROCHLORIDE
     Indication: TYPE 2 DIABETES MELLITUS
     Route: 048
     Dates: end: 201612
  2. INVOKANA [Suspect]
     Active Substance: CANAGLIFLOZIN
     Indication: TYPE 2 DIABETES MELLITUS
     Route: 048
     Dates: end: 201612
  3. GLIPIZIDE. [Suspect]
     Active Substance: GLIPIZIDE
     Indication: TYPE 2 DIABETES MELLITUS
     Route: 048
     Dates: end: 201612

REACTIONS (7)
  - Sepsis [Fatal]
  - Diabetic foot infection [Fatal]
  - Toe amputation [Unknown]
  - Dry gangrene [Unknown]
  - Injury [Unknown]
  - Leg amputation [Unknown]
  - Wound necrosis [Unknown]

NARRATIVE: CASE EVENT DATE: 201610
